FAERS Safety Report 16323784 (Version 1)
Quarter: 2019Q2

REPORT INFORMATION
  Report Type: Spontaneous
  Country: US (occurrence: US)
  Receive Date: 20190517
  Receipt Date: 20190517
  Transmission Date: 20190711
  Serious: Yes (Death, Other)
  Sender: FDA-Public Use
  Company Number: US-AMGEN-USASP2019075750

PATIENT
  Age: 62 Year
  Sex: Male
  Weight: 51.25 kg

DRUGS (2)
  1. ENBREL [Suspect]
     Active Substance: ETANERCEPT
     Indication: RHEUMATOID ARTHRITIS
     Dosage: 50 MILLIGRAM, QWK
     Route: 065
     Dates: end: 20111003
  2. MTX [METHOTREXATE] [Concomitant]
     Active Substance: METHOTREXATE SODIUM
     Dosage: UNK

REACTIONS (7)
  - Candida infection [Unknown]
  - Femur fracture [Unknown]
  - Haemoptysis [Unknown]
  - Injection site haemorrhage [Unknown]
  - Fall [Unknown]
  - Lymphoma [Fatal]
  - Injection site pain [Unknown]

NARRATIVE: CASE EVENT DATE: 200912
